FAERS Safety Report 6931463-5 (Version None)
Quarter: 2010Q3

REPORT INFORMATION
  Report Type: 
  Country: None (occurrence: None)
  Receive Date: 20100819
  Receipt Date: 20100812
  Transmission Date: 20110219
  Serious: No
  Sender: FDA-Public Use
  Company Number: US-US-EMD SERONO, INC.-7014285

PATIENT
  Sex: Female

DRUGS (3)
  1. REBIF [Suspect]
     Indication: PRODUCT USED FOR UNKNOWN INDICATION
     Route: 058
     Dates: start: 20100706, end: 20100101
  2. REBIF [Suspect]
     Route: 058
     Dates: start: 20100801
  3. DIURETIC [Concomitant]
     Dates: end: 20100101

REACTIONS (6)
  - BLOOD POTASSIUM DECREASED [None]
  - CHOLELITHIASIS [None]
  - CYST [None]
  - DIARRHOEA [None]
  - HYPERHIDROSIS [None]
  - INJECTION SITE DISCOLOURATION [None]
